FAERS Safety Report 16636867 (Version 2)
Quarter: 2019Q3

REPORT INFORMATION
  Report Type: Spontaneous
  Country: DE (occurrence: DE)
  Receive Date: 20190726
  Receipt Date: 20190822
  Transmission Date: 20191004
  Serious: Yes (Life-Threatening, Hospitalization, Other)
  Sender: FDA-Public Use
  Company Number: DE-IGSA-SR10008826

PATIENT

DRUGS (1)
  1. GAMUNEX [Suspect]
     Active Substance: HUMAN IMMUNOGLOBULIN G
     Indication: CHRONIC INFLAMMATORY DEMYELINATING POLYRADICULONEUROPATHY
     Dosage: 80 G, UNKNOWN
     Route: 042
     Dates: start: 201907

REACTIONS (6)
  - Respiratory distress [Not Recovered/Not Resolved]
  - Pulmonary congestion [Not Recovered/Not Resolved]
  - Bronchospasm [Recovering/Resolving]
  - Pulmonary oedema [Not Recovered/Not Resolved]
  - Dyspnoea [Recovering/Resolving]
  - Hypertensive crisis [Recovering/Resolving]

NARRATIVE: CASE EVENT DATE: 20190709
